FAERS Safety Report 13063288 (Version 1)
Quarter: 2016Q4

REPORT INFORMATION
  Report Type: Spontaneous
  Country: GB (occurrence: GB)
  Receive Date: 20161227
  Receipt Date: 20161227
  Transmission Date: 20170207
  Serious: Yes (Other)
  Sender: FDA-Public Use
  Company Number: GB-ACCORD-046846

PATIENT
  Sex: Male

DRUGS (5)
  1. CYCLOPHOSPHAMIDE SANDOZ LTD [Suspect]
     Active Substance: CYCLOPHOSPHAMIDE
     Indication: EPENDYMOMA
     Route: 048
  2. CIPROFLOXACIN. [Concomitant]
     Active Substance: CIPROFLOXACIN
     Indication: LOWER RESPIRATORY TRACT INFECTION
  3. ETOPOSIDE. [Suspect]
     Active Substance: ETOPOSIDE
     Indication: EPENDYMOMA
     Route: 048
  4. CELECOXIB. [Suspect]
     Active Substance: CELECOXIB
     Indication: EPENDYMOMA
  5. FENOFIBRATE. [Suspect]
     Active Substance: FENOFIBRATE
     Indication: EPENDYMOMA

REACTIONS (2)
  - Ependymoma [Unknown]
  - Disease recurrence [Unknown]

NARRATIVE: CASE EVENT DATE: 201608
